FAERS Safety Report 5699390-1 (Version None)
Quarter: 2008Q2

REPORT INFORMATION
  Report Type: 
  Country: None (occurrence: None)
  Receive Date: 20080407
  Receipt Date: 20080326
  Transmission Date: 20081010
  Serious: Yes (Other)
  Sender: FDA-Public Use
  Company Number: CHPA2008US05434

PATIENT
  Age: 31 Year
  Sex: Male

DRUGS (1)
  1. 4 WAY FAST ACTING NASAL SPRAY (NCH)(PHENYLEPHRINE) NASAL SPRAY [Suspect]
     Indication: NASAL CONGESTION
     Dosage: EVERYDAY AS NEEDED, NASAL
     Route: 045

REACTIONS (2)
  - DRUG DEPENDENCE [None]
  - INTENTIONAL DRUG MISUSE [None]
